FAERS Safety Report 11140142 (Version 1)
Quarter: 2015Q2

REPORT INFORMATION
  Report Type: Spontaneous
  Country: US (occurrence: US)
  Receive Date: 20150527
  Receipt Date: 20150527
  Transmission Date: 20150821
  Serious: Yes (Other)
  Sender: FDA-Public Use
  Company Number: US-ENDO PHARMACEUTICALS INC.-2015-001026

PATIENT
  Age: 42 Year
  Sex: Male
  Weight: 111.23 kg

DRUGS (5)
  1. TESTOPEL [Suspect]
     Active Substance: TESTOSTERONE
     Indication: PRODUCT USED FOR UNKNOWN INDICATION
     Dosage: 4-5 PELLETS
     Route: 058
     Dates: start: 20140224
  2. TESTOPEL [Suspect]
     Active Substance: TESTOSTERONE
     Dosage: 10 PELLETS
     Route: 058
     Dates: start: 201406
  3. TESTOPEL [Suspect]
     Active Substance: TESTOSTERONE
     Route: 058
     Dates: start: 201503
  4. LISINOPRIL TABLETS 20MG [Concomitant]
     Active Substance: LISINOPRIL
     Indication: PRODUCT USED FOR UNKNOWN INDICATION
     Route: 065
  5. TESTOPEL [Suspect]
     Active Substance: TESTOSTERONE
     Dosage: 14 PELLETS
     Route: 058
     Dates: start: 20141113

REACTIONS (7)
  - Prescribed overdose [Unknown]
  - Anger [Unknown]
  - Dependence [Unknown]
  - Hypersexuality [Unknown]
  - Paranoia [Unknown]
  - Feeling abnormal [Unknown]
  - Aggression [Unknown]

NARRATIVE: CASE EVENT DATE: 2014
